FAERS Safety Report 4705240-X (Version None)
Quarter: 2005Q2

REPORT INFORMATION
  Report Type: 
  Country: None (occurrence: None)
  Receive Date: 20050208
  Receipt Date: 20050208
  Transmission Date: 20051028
  Serious: Yes (Other)
  Sender: FDA-Public Use
  Company Number: None

PATIENT
  Age: 41 Year
  Sex: Male
  Weight: 108.8633 kg

DRUGS (6)
  1. MORPHINE SULFATE [Suspect]
     Indication: PAIN
     Dosage: PO Q12 HR
     Route: 048
     Dates: start: 20020201
  2. MORPHINE SULFATE [Suspect]
     Indication: SPINAL CORD DISORDER
     Dosage: PO Q12 HR
     Route: 048
     Dates: start: 20020201
  3. BACLOFEN [Concomitant]
  4. ELAVIL [Concomitant]
  5. PHENOBARBITAL [Concomitant]
  6. TEGRETOL [Concomitant]

REACTIONS (5)
  - CONDITION AGGRAVATED [None]
  - CONSTIPATION [None]
  - NEUROGENIC BOWEL [None]
  - PHARMACEUTICAL PRODUCT COMPLAINT [None]
  - THERAPEUTIC RESPONSE UNEXPECTED WITH DRUG SUBSTITUTION [None]
